FAERS Safety Report 5772373-9 (Version None)
Quarter: 2008Q2

REPORT INFORMATION
  Report Type: 
  Country: None (occurrence: None)
  Receive Date: 20080613
  Receipt Date: 20080604
  Transmission Date: 20081010
  Serious: Yes (Hospitalization)
  Sender: FDA-Public Use
  Company Number: JP-ABBOTT-06P-087-0339785-00

PATIENT
  Sex: Male
  Weight: 72.8 kg

DRUGS (16)
  1. HUMIRA [Suspect]
     Indication: RHEUMATOID ARTHRITIS
     Route: 058
     Dates: start: 20050323, end: 20060724
  2. REBAMIPIDE [Concomitant]
     Indication: PROPHYLAXIS AGAINST GASTROINTESTINAL ULCER
     Route: 048
     Dates: start: 20040714
  3. REBAMIPIDE [Concomitant]
     Route: 048
     Dates: start: 20040818
  4. REBAMIPIDE [Concomitant]
     Route: 048
     Dates: start: 20061030
  5. LOXOPROFEN SODIUM [Concomitant]
     Indication: RHEUMATOID ARTHRITIS
     Dates: start: 20040714
  6. LOXOPROFEN SODIUM [Concomitant]
     Route: 048
     Dates: start: 20040818
  7. LOXOPROFEN SODIUM [Concomitant]
     Dates: start: 20061030
  8. METHOTREXATE [Concomitant]
     Indication: RHEUMATOID ARTHRITIS
     Route: 048
     Dates: start: 20041118
  9. METHOTREXATE [Concomitant]
     Route: 048
     Dates: start: 20070417
  10. PREDNISOLONE [Concomitant]
     Indication: RHEUMATOID ARTHRITIS
     Route: 048
     Dates: start: 20040825
  11. PREDNISOLONE [Concomitant]
     Indication: PROPHYLAXIS
     Route: 048
     Dates: start: 20060221
  12. PREDNISOLONE [Concomitant]
     Indication: STEROID THERAPY
  13. PRAVASTATIN SODIUM [Concomitant]
     Indication: HYPERLIPIDAEMIA
     Route: 048
     Dates: start: 20050926
  14. AMLODIPINE BESYLATE [Concomitant]
     Indication: HYPERTENSION
     Route: 048
     Dates: start: 20060612
  15. TELMISARTAN [Concomitant]
     Indication: HYPERTENSION
     Route: 048
     Dates: start: 20050113
  16. METHOTREXATE SODIUM [Concomitant]
     Indication: RHEUMATOID ARTHRITIS
     Route: 048
     Dates: start: 20060926

REACTIONS (2)
  - PLEURAL EFFUSION [None]
  - PULMONARY MASS [None]
